FAERS Safety Report 5443464-7 (Version None)
Quarter: 2007Q3

REPORT INFORMATION
  Report Type: 
  Country: None (occurrence: None)
  Receive Date: 20070905
  Receipt Date: 20070823
  Transmission Date: 20080115
  Serious: Yes (Death)
  Sender: FDA-Public Use
  Company Number: US-MERCK-0708USA05875

PATIENT
  Age: 18 Year
  Sex: Female

DRUGS (3)
  1. CRIXIVAN [Suspect]
     Route: 048
  2. LAMIVUDINE [Concomitant]
     Route: 065
  3. ZIDOVUDINE [Concomitant]
     Route: 065

REACTIONS (1)
  - DEATH [None]
